FAERS Safety Report 5730793-2 (Version None)
Quarter: 2008Q2

REPORT INFORMATION
  Report Type: 
  Country: None (occurrence: None)
  Receive Date: 20080430
  Receipt Date: 20080117
  Transmission Date: 20081010
  Serious: No
  Sender: FDA-Public Use
  Company Number: 2007PV032815

PATIENT
  Age: 47 Year
  Sex: Female

DRUGS (5)
  1. SYMLIN [Suspect]
     Indication: TYPE 1 DIABETES MELLITUS
     Dosage: 15 MCG;TID;SC, 120 MCG;TID;SC, 15 MCG;TID;SC
     Route: 058
     Dates: start: 20070413, end: 20070501
  2. SYMLIN [Suspect]
     Indication: TYPE 1 DIABETES MELLITUS
     Dosage: 15 MCG;TID;SC, 120 MCG;TID;SC, 15 MCG;TID;SC
     Route: 058
     Dates: start: 20070501, end: 20070501
  3. SYMLIN [Suspect]
     Indication: TYPE 1 DIABETES MELLITUS
     Dosage: 15 MCG;TID;SC, 120 MCG;TID;SC, 15 MCG;TID;SC
     Route: 058
     Dates: start: 20080115
  4. HUMALOG [Concomitant]
  5. LANTUS [Concomitant]

REACTIONS (2)
  - BLOOD GLUCOSE DECREASED [None]
  - DECREASED APPETITE [None]
